FAERS Safety Report 9419376 (Version 1)
Quarter: 2013Q3

REPORT INFORMATION
  Report Type: Spontaneous
  Country: US (occurrence: US)
  Receive Date: 20130725
  Receipt Date: 20130725
  Transmission Date: 20140515
  Serious: No
  Sender: FDA-Public Use
  Company Number: US-BAYER-2013-089084

PATIENT
  Sex: Male
  Weight: 86 kg

DRUGS (3)
  1. BETASERON [Suspect]
     Dosage: 300 ?G, QOD
     Route: 058
  2. IBUPROFEN [Concomitant]
     Dosage: 200 MG, UNK
  3. TYLENOL [PARACETAMOL] [Concomitant]
     Dosage: 500 MG, UNK

REACTIONS (2)
  - Injection site scar [Unknown]
  - Fatigue [Unknown]
